FAERS Safety Report 19393936 (Version 1)
Quarter: 2021Q2

REPORT INFORMATION
  Report Type: Spontaneous
  Country: US (occurrence: US)
  Receive Date: 20210609
  Receipt Date: 20210609
  Transmission Date: 20210717
  Serious: Yes (Other)
  Sender: FDA-Public Use
  Company Number: US-GLAXOSMITHKLINE-US2021GSK122418

PATIENT
  Sex: Female

DRUGS (4)
  1. ZANTAC [Suspect]
     Active Substance: RANITIDINE HYDROCHLORIDE
     Indication: GASTRECTOMY
     Dosage: 25 MG, QD
     Route: 065
     Dates: start: 201405, end: 201512
  2. RANITIDINE CAPSULE [Suspect]
     Active Substance: RANITIDINE
     Indication: GASTRECTOMY
     Dosage: 25 MG, QD
     Route: 065
     Dates: start: 201405, end: 201512
  3. ZANTAC [Suspect]
     Active Substance: RANITIDINE HYDROCHLORIDE
     Indication: GASTRECTOMY
     Dosage: 25 MG, QD
     Route: 065
     Dates: start: 201405, end: 201512
  4. ZANTAC [Suspect]
     Active Substance: RANITIDINE HYDROCHLORIDE
     Indication: GASTRECTOMY
     Dosage: 25 MG, QD
     Route: 065
     Dates: start: 201405, end: 201512

REACTIONS (2)
  - Colorectal cancer [Unknown]
  - Lung neoplasm malignant [Unknown]
